FAERS Safety Report 5403585-1 (Version None)
Quarter: 2007Q3

REPORT INFORMATION
  Report Type: 
  Country: None (occurrence: None)
  Receive Date: 20070802
  Receipt Date: 20070724
  Transmission Date: 20080115
  Serious: Yes (Disabling)
  Sender: FDA-Public Use
  Company Number: PHFR2007GB01978

PATIENT
  Age: 34 Year
  Sex: Female
  Weight: 65 kg

DRUGS (3)
  1. GLEEVEC [Suspect]
     Indication: CHRONIC MYELOID LEUKAEMIA
     Dosage: 400MG / DAY
     Route: 048
     Dates: start: 20060301
  2. LENOGRASTIM [Concomitant]
     Indication: CHRONIC MYELOID LEUKAEMIA
     Dosage: 263MCG / 3 WEEKS
  3. ASPIRIN [Concomitant]
     Indication: CHRONIC MYELOID LEUKAEMIA
     Dosage: 75MG / DAY
     Route: 048

REACTIONS (9)
  - BODY TEMPERATURE INCREASED [None]
  - FATIGUE [None]
  - HAEMATOCRIT DECREASED [None]
  - HYPERAESTHESIA [None]
  - HYPOAESTHESIA [None]
  - LYMPHOCYTE COUNT DECREASED [None]
  - MEAN CELL VOLUME ABNORMAL [None]
  - PARAESTHESIA [None]
  - RED BLOOD CELL COUNT DECREASED [None]
